FAERS Safety Report 6930812-1 (Version None)
Quarter: 2010Q3

REPORT INFORMATION
  Report Type: 
  Country: None (occurrence: None)
  Receive Date: 20100813
  Receipt Date: 20100804
  Transmission Date: 20110219
  Serious: Yes (Death, Life-Threatening)
  Sender: FDA-Public Use
  Company Number: 7012435

PATIENT
  Age: 58 Year
  Sex: Female

DRUGS (6)
  1. REBIF [Suspect]
     Dosage: 44 MCG, 3 IN 1 WK, SUBCUTANEOUS
     Dates: start: 20020701, end: 20100701
  2. BACLOFEN [Concomitant]
  3. CO-CODAMOL (PANADEINE CO) [Concomitant]
  4. DETRUSITOL (TOLTERODINE) [Concomitant]
  5. PAROXETINE HCL [Concomitant]
  6. ATENOLOL [Concomitant]

REACTIONS (1)
  - SUBARACHNOID HAEMORRHAGE [None]
